FAERS Safety Report 8018721-0 (Version None)
Quarter: 2012Q1

REPORT INFORMATION
  Report Type: 
  Country: None (occurrence: None)
  Receive Date: 20120103
  Receipt Date: 20111228
  Transmission Date: 20120608
  Serious: Yes (Death, Hospitalization, Other)
  Sender: FDA-Public Use
  Company Number: JP-SANOFI-AVENTIS-2011SA080696

PATIENT
  Age: 63 Year
  Sex: Male
  Weight: 60 kg

DRUGS (6)
  1. ALL OTHER THERAPEUTIC PRODUCTS [Concomitant]
     Route: 048
     Dates: start: 20111101, end: 20111101
  2. LEUPROLIDE ACETATE [Concomitant]
     Route: 058
     Dates: start: 20111022, end: 20111122
  3. CASODEX [Concomitant]
     Dosage: STOP DATE: 10 DEC 2011
     Route: 048
     Dates: start: 20111019, end: 20111201
  4. TAXOTERE [Suspect]
     Indication: PROSTATE CANCER
     Dosage: START DATE: 2 COURSES
     Route: 042
     Dates: start: 20111101, end: 20111101
  5. DEXAMETHASONE SODIUM PHOSPHATE [Concomitant]
     Dates: start: 20111101, end: 20111101
  6. LYRICA [Suspect]
     Route: 065

REACTIONS (2)
  - NEUTROPENIA [None]
  - INTERSTITIAL LUNG DISEASE [None]
